FAERS Safety Report 15067756 (Version 1)
Quarter: 2018Q2

REPORT INFORMATION
  Report Type: Spontaneous
  Country: US (occurrence: US)
  Receive Date: 20180626
  Receipt Date: 20180626
  Transmission Date: 20180711
  Serious: No
  Sender: FDA-Public Use
  Company Number: US-VIFOR (INTERNATIONAL) INC.-VIT-2018-06273

PATIENT
  Age: 27 Year
  Sex: Male

DRUGS (5)
  1. RENVELA [Concomitant]
     Active Substance: SEVELAMER CARBONATE
  2. VELTASSA [Suspect]
     Active Substance: PATIROMER
     Indication: END STAGE RENAL DISEASE
     Route: 048
     Dates: start: 20180608
  3. EPOGEN [Concomitant]
     Active Substance: ERYTHROPOIETIN
  4. HECTOROL [Concomitant]
     Active Substance: DOXERCALCIFEROL
  5. AMLODIPINE BESILATE [Concomitant]
     Active Substance: AMLODIPINE BESYLATE

REACTIONS (3)
  - Drug dose omission [Unknown]
  - No adverse event [Unknown]
  - Product use in unapproved indication [Unknown]

NARRATIVE: CASE EVENT DATE: 201806
